FAERS Safety Report 6037979-0 (Version None)
Quarter: 2009Q1

REPORT INFORMATION
  Report Type: 
  Country: None (occurrence: None)
  Receive Date: 20090115
  Receipt Date: 20090109
  Transmission Date: 20090719
  Serious: Yes (Other)
  Sender: FDA-Public Use
  Company Number: SE-AMGEN-US325072

PATIENT
  Sex: Female

DRUGS (2)
  1. ENBREL [Suspect]
     Indication: RHEUMATOID ARTHRITIS
     Dosage: DOSE 50 MG WEEKLY
     Route: 065
     Dates: start: 19990701, end: 20081107
  2. METHOTREXATE [Concomitant]
     Route: 065

REACTIONS (3)
  - CRYOGLOBULINAEMIA [None]
  - DRUG INEFFECTIVE [None]
  - RENAL FAILURE ACUTE [None]
